FAERS Safety Report 16372409 (Version 7)
Quarter: 2019Q4

REPORT INFORMATION
  Report Type: Report from Study
  Country: CA (occurrence: CA)
  Receive Date: 20190530
  Receipt Date: 20191111
  Transmission Date: 20200122
  Serious: Yes (Other)
  Sender: FDA-Public Use
  Company Number: PHHY2019CA093556

PATIENT
  Age: 51 Year
  Sex: Male

DRUGS (5)
  1. SIGNIFOR [Suspect]
     Active Substance: PASIREOTIDE
     Indication: PITUITARY-DEPENDENT CUSHING^S SYNDROME
     Dosage: 0.6 UG, UNK
     Route: 058
     Dates: start: 20190329
  2. SIGNIFOR [Suspect]
     Active Substance: PASIREOTIDE
     Dosage: 0.6 MG (0.3 MG, BID, EVERY 2 DAYS)
     Route: 058
  3. RAMIPRIL. [Suspect]
     Active Substance: RAMIPRIL
     Indication: HYPERTENSION
     Dosage: 10 MG, QD (IN THE MORNING)
     Route: 065
  4. SIGNIFOR [Suspect]
     Active Substance: PASIREOTIDE
     Dosage: 0.3 UG, UNK
     Route: 058
  5. DOSTINEX [Concomitant]
     Active Substance: CABERGOLINE
     Indication: PRODUCT USED FOR UNKNOWN INDICATION
     Dosage: UNK
     Route: 065

REACTIONS (14)
  - Diarrhoea [Recovering/Resolving]
  - Glucocorticoid deficiency [Recovering/Resolving]
  - Adrenal insufficiency [Unknown]
  - Bone pain [Unknown]
  - Blood glucose abnormal [Recovering/Resolving]
  - Sleep disorder [Unknown]
  - Inappropriate schedule of product administration [Unknown]
  - Weight increased [Unknown]
  - Nausea [Recovering/Resolving]
  - Fatigue [Recovering/Resolving]
  - Dizziness [Unknown]
  - Cortisol decreased [Unknown]
  - Hypotension [Unknown]
  - Limb discomfort [Unknown]

NARRATIVE: CASE EVENT DATE: 201904
